FAERS Safety Report 5832356-7 (Version None)
Quarter: 2008Q3

REPORT INFORMATION
  Report Type: 
  Country: None (occurrence: None)
  Receive Date: 20080731
  Receipt Date: 20080731
  Transmission Date: 20090109
  Serious: No
  Sender: FDA-Public Use
  Company Number: None

PATIENT
  Age: 58 Year
  Sex: Female
  Weight: 113.3993 kg

DRUGS (1)
  1. NOVOLIN N [Suspect]

REACTIONS (11)
  - ABDOMINAL PAIN UPPER [None]
  - DISCOMFORT [None]
  - DRY SKIN [None]
  - FALL [None]
  - FLATULENCE [None]
  - HEADACHE [None]
  - HUNGER [None]
  - HYPERSENSITIVITY [None]
  - PAIN [None]
  - PHARMACEUTICAL PRODUCT COMPLAINT [None]
  - UNEVALUABLE EVENT [None]
